FAERS Safety Report 7266027-X (Version None)
Quarter: 2011Q1

REPORT INFORMATION
  Report Type: 
  Country: None (occurrence: None)
  Receive Date: 20110120
  Receipt Date: 20110114
  Transmission Date: 20110831
  Serious: Yes (Hospitalization, Other)
  Sender: FDA-Public Use
  Company Number: 2008-187211-NL

PATIENT
  Age: 29 Year
  Sex: Female
  Weight: 95.709 kg

DRUGS (6)
  1. NAPROXIN [Concomitant]
  2. NUVARING [Suspect]
     Indication: MENORRHAGIA
     Dosage: 1 DF;Q3W;VAG
     Route: 067
     Dates: start: 20070801, end: 20070930
  3. NUVARING [Suspect]
     Indication: CONTRACEPTION
     Dosage: 1 DF;Q3W;VAG
     Route: 067
     Dates: start: 20070801, end: 20070930
  4. NUVARING [Suspect]
     Indication: DYSMENORRHOEA
     Dosage: 1 DF;Q3W;VAG
     Route: 067
     Dates: start: 20070801, end: 20070930
  5. METFORMIN [Concomitant]
  6. ALTACDE [Concomitant]

REACTIONS (24)
  - INTERNATIONAL NORMALISED RATIO INCREASED [None]
  - PROTHROMBIN TIME PROLONGED [None]
  - POST PROCEDURAL COMPLICATION [None]
  - DYSMENORRHOEA [None]
  - DEEP VEIN THROMBOSIS [None]
  - ECCHYMOSIS [None]
  - HAEMATOCHEZIA [None]
  - MULTIPLE INJURIES [None]
  - MENORRHAGIA [None]
  - VAGINAL HAEMORRHAGE [None]
  - INSOMNIA [None]
  - PHARYNGITIS [None]
  - UTERINE LEIOMYOMA [None]
  - PULMONARY EMBOLISM [None]
  - COSTOCHONDRITIS [None]
  - GASTROOESOPHAGEAL REFLUX DISEASE [None]
  - INCREASED APPETITE [None]
  - DYSPAREUNIA [None]
  - UTERINE POLYP [None]
  - THROMBOPHLEBITIS [None]
  - INJECTION SITE PAIN [None]
  - HYPERCOAGULATION [None]
  - TREATMENT NONCOMPLIANCE [None]
  - HEADACHE [None]
